FAERS Safety Report 19381081 (Version 1)
Quarter: 2021Q2

REPORT INFORMATION
  Report Type: Spontaneous
  Country: US (occurrence: US)
  Receive Date: 20210607
  Receipt Date: 20210607
  Transmission Date: 20210717
  Serious: No
  Sender: FDA-Public Use
  Company Number: US-BAUSCH-BL-2021-018816

PATIENT
  Age: 41 Year
  Sex: Female

DRUGS (2)
  1. ASPARTAME [Suspect]
     Active Substance: ASPARTAME
     Indication: BOWEL PREPARATION
     Route: 048
     Dates: start: 20210520, end: 20210521
  2. PLENVU [Suspect]
     Active Substance: ASCORBIC ACID\POLYETHYLENE GLYCOL 3350\POTASSIUM CHLORIDE\SODIUM ASCORBATE\SODIUM CHLORIDE\SODIUM SULFATE
     Indication: BOWEL PREPARATION
     Dosage: ON THE EVENING OF 20/MAY/2021 AND MORNING OF 21/MAY/2021
     Route: 048
     Dates: start: 20210520, end: 20210521

REACTIONS (2)
  - Product taste abnormal [Unknown]
  - Migraine [Recovered/Resolved]

NARRATIVE: CASE EVENT DATE: 20210520
